FAERS Safety Report 5286383-1 (Version None)
Quarter: 2007Q2

REPORT INFORMATION
  Report Type: 
  Country: None (occurrence: None)
  Receive Date: 20070404
  Receipt Date: 20070323
  Transmission Date: 20071010
  Serious: Yes (Hospitalization, Other)
  Sender: FDA-Public Use
  Company Number: US-AMGEN-US217580

PATIENT
  Sex: Male
  Weight: 52.7 kg

DRUGS (3)
  1. PROCRIT [Suspect]
     Indication: ANAEMIA
     Route: 065
     Dates: start: 20070101, end: 20070101
  2. COUMADIN [Concomitant]
     Dates: start: 20070301
  3. FLOMAX [Concomitant]
     Dates: start: 20070101, end: 20070201

REACTIONS (6)
  - BREAST SWELLING [None]
  - CONTUSION [None]
  - HOSPITALISATION [None]
  - OEDEMA PERIPHERAL [None]
  - PAIN IN EXTREMITY [None]
  - PARALYSIS [None]
